FAERS Safety Report 20291250 (Version 1)
Quarter: 2022Q1

REPORT INFORMATION
  Report Type: Spontaneous
  Country: US (occurrence: None)
  Receive Date: 20220103
  Receipt Date: 20220103
  Transmission Date: 20220423
  Serious: Yes (Disabling)
  Sender: FDA-Public Use
  Company Number: None

PATIENT
  Age: 54 Year
  Sex: Male
  Weight: 121.5 kg

DRUGS (1)
  1. REPATHA [Suspect]
     Active Substance: EVOLOCUMAB
     Indication: Blood cholesterol increased
     Dosage: OTHER QUANTITY : 1 INJECTION(S);?OTHER FREQUENCY : BIWEEKLY;?OTHER ROUTE : INJECTION INTO STOMACH;?
     Route: 050
     Dates: end: 20211226

REACTIONS (7)
  - Fatigue [None]
  - Headache [None]
  - Muscular weakness [None]
  - Asthenia [None]
  - Loss of personal independence in daily activities [None]
  - Back pain [None]
  - Influenza like illness [None]

NARRATIVE: CASE EVENT DATE: 20210101
